FAERS Safety Report 7156076-4 (Version None)
Quarter: 2010Q4

REPORT INFORMATION
  Report Type: 
  Country: None (occurrence: None)
  Receive Date: 20101123
  Receipt Date: 20101013
  Transmission Date: 20110411
  Serious: Yes (Hospitalization)
  Sender: FDA-Public Use
  Company Number: 016849

PATIENT
  Sex: Male

DRUGS (6)
  1. CIMZIA [Suspect]
     Indication: CROHN'S DISEASE
     Dosage: (400 MG 1X/4 WEEKS SUBCUTANEOUS)
     Route: 058
     Dates: start: 20090815
  2. MERCAPTOPURINE [Suspect]
     Indication: CROHN'S DISEASE
     Dosage: (50 MG ORAL)
     Route: 048
     Dates: start: 20100624, end: 20100720
  3. CALCIUM W/VITAMIN D /00188401/ [Concomitant]
  4. ENTOCORT EC [Concomitant]
  5. FOSAMAX [Concomitant]
  6. ULTRAM [Concomitant]

REACTIONS (5)
  - ABDOMINAL DISTENSION [None]
  - DRUG INEFFECTIVE [None]
  - INTESTINAL RESECTION [None]
  - PAIN [None]
  - PANCREATITIS [None]
